FAERS Safety Report 8504861-6 (Version None)
Quarter: 2012Q2

REPORT INFORMATION
  Report Type: 
  Country: None (occurrence: None)
  Receive Date: 20120405
  Receipt Date: 20100820
  Transmission Date: 20120825
  Serious: Yes (Other)
  Sender: FDA-Public Use
  Company Number: PHHY2010US55528

PATIENT
  Age: 75 Year
  Sex: Female
  Weight: 180 kg

DRUGS (18)
  1. METOPROLOL TARTRATE [Concomitant]
  2. BENICAR [Concomitant]
  3. WELCHOL(COLESEVELAN HYDROCHLORIDE) [Concomitant]
  4. ATRAXIN (MEPROBAMATE) [Concomitant]
  5. AMLODIPINE [Concomitant]
  6. CELEBREX [Concomitant]
  7. HUMALOG [Concomitant]
  8. CITALOPRAMIDE (CITALOPRAMIDE) [Concomitant]
  9. FERROUS SULFATE TAB [Concomitant]
  10. TRIAMCINOLONE [Concomitant]
  11. LANTUS [Concomitant]
  12. ASPIRIN [Concomitant]
  13. LORAZEPAM [Concomitant]
  14. RECLAST [Suspect]
     Indication: OSTEOPOROSIS
     Dosage: 5 MG, INTRAVENOUS
     Route: 042
     Dates: start: 20100818
  15. CYMBALTA [Concomitant]
  16. TOPAMAX [Concomitant]
  17. ELETRIPTAN HYDROBROMIDE [Concomitant]
  18. HYDROCODONE BITARTRATE [Concomitant]

REACTIONS (3)
  - FEELING ABNORMAL [None]
  - DIZZINESS [None]
  - PAIN [None]
